FAERS Safety Report 8407376-9 (Version None)
Quarter: 2012Q2

REPORT INFORMATION
  Report Type: 
  Country: None (occurrence: None)
  Receive Date: 20120529
  Receipt Date: 20120518
  Transmission Date: 20120825
  Serious: Yes (Hospitalization)
  Sender: FDA-Public Use
  Company Number: CA-008481

PATIENT
  Age: 73 Year
  Sex: Male
  Weight: 69 kg

DRUGS (4)
  1. FIRMAGON [Suspect]
     Indication: PROSTATE CANCER
     Dosage: (240 MG QD SUBCUTANEOUS)
     Route: 058
     Dates: start: 20120423, end: 20120423
  2. SYMBICORT [Concomitant]
  3. ALBUTEROL [Concomitant]
  4. PERINDOPRIL ERBUMINE [Concomitant]

REACTIONS (5)
  - DYSPNOEA [None]
  - HYPERHIDROSIS [None]
  - SPEECH DISORDER [None]
  - TREMOR [None]
  - FATIGUE [None]
